FAERS Safety Report 17524599 (Version 2)
Quarter: 2020Q1

REPORT INFORMATION
  Report Type: Spontaneous
  Country: US (occurrence: US)
  Receive Date: 20200311
  Receipt Date: 20200331
  Transmission Date: 20200409
  Serious: No
  Sender: FDA-Public Use
  Company Number: US-BAUSCH-BL-2020-004718

PATIENT
  Age: 70 Year
  Sex: Male

DRUGS (2)
  1. LUMIFY [Suspect]
     Active Substance: BRIMONIDINE TARTRATE
     Indication: PRODUCT USED FOR UNKNOWN INDICATION
     Dosage: OLD BOTTLE
     Route: 047
     Dates: start: 20200211, end: 20200211
  2. LUMIFY [Suspect]
     Active Substance: BRIMONIDINE TARTRATE
     Dosage: NEW BOTTLE
     Route: 047
     Dates: start: 20200211, end: 20200211

REACTIONS (2)
  - Product counterfeit [Unknown]
  - Eye irritation [Unknown]

NARRATIVE: CASE EVENT DATE: 20200211
